FAERS Safety Report 19278890 (Version 1)
Quarter: 2021Q2

REPORT INFORMATION
  Report Type: Spontaneous
  Country: FR (occurrence: FR)
  Receive Date: 20210520
  Receipt Date: 20210520
  Transmission Date: 20210717
  Serious: Yes (Hospitalization)
  Sender: FDA-Public Use
  Company Number: FR-AMERICAN REGENT INC-2021001287

PATIENT
  Age: 38 Year
  Sex: Female

DRUGS (1)
  1. VENOFER [Suspect]
     Active Substance: IRON SUCROSE
     Indication: ANAEMIA
     Dosage: 3 AMPOULES (3 DOSAGE FORMS)
     Route: 042
     Dates: start: 20210327, end: 20210327

REACTIONS (1)
  - Brachiocephalic vein thrombosis [Recovering/Resolving]

NARRATIVE: CASE EVENT DATE: 20210327
